FAERS Safety Report 6433573-8 (Version None)
Quarter: 2009Q4

REPORT INFORMATION
  Report Type: 
  Country: None (occurrence: None)
  Receive Date: 20091106
  Receipt Date: 20091106
  Transmission Date: 20100525
  Serious: Yes (Hospitalization)
  Sender: FDA-Public Use
  Company Number: None

PATIENT
  Age: 58 Year
  Sex: Female
  Weight: 82.6 kg

DRUGS (9)
  1. APRICOXIB / PLACEBO 400MG DAILY - TRAGARA PHARMACA [Suspect]
     Indication: NON-SMALL CELL LUNG CANCER
     Dosage: 400 MG PO DAILY
     Route: 048
     Dates: start: 20081205, end: 20090609
  2. ALIMTA [Suspect]
     Dosage: 500MG/M2 IV Q21 DAYS X6
     Route: 042
     Dates: start: 20081216, end: 20090303
  3. METFORMIN HCL [Concomitant]
  4. TOPROL-XL [Concomitant]
  5. MICARDIS [Concomitant]
  6. POTASSIUM CHLORIDE [Concomitant]
  7. LIPITOR [Concomitant]
  8. NEXIUM [Concomitant]
  9. FOLIC ACID [Concomitant]

REACTIONS (4)
  - GRAND MAL CONVULSION [None]
  - HAEMOPTYSIS [None]
  - HYPOXIA [None]
  - LETHARGY [None]
